FAERS Safety Report 24966684 (Version 1)
Quarter: 2025Q1

REPORT INFORMATION
  Report Type: Spontaneous
  Country: US (occurrence: US)
  Receive Date: 20250213
  Receipt Date: 20250213
  Transmission Date: 20250409
  Serious: Yes (Other)
  Sender: DOMPE FARMACEUTICI
  Company Number: US-FARMAPROD-202501-0266

PATIENT
  Sex: Female

DRUGS (10)
  1. OXERVATE [Suspect]
     Active Substance: CENEGERMIN-BKBJ
     Indication: Neurotrophic keratopathy
     Route: 047
     Dates: start: 20250121
  2. FOSAMAX [Concomitant]
     Active Substance: ALENDRONATE SODIUM
  3. FLECAINIDE ACETATE [Concomitant]
     Active Substance: FLECAINIDE ACETATE
  4. METOPROLOL SUCCINATE [Concomitant]
     Active Substance: METOPROLOL SUCCINATE
  5. XARELTO [Concomitant]
     Active Substance: RIVAROXABAN
  6. LISINOPRIL [Concomitant]
     Active Substance: LISINOPRIL
  7. CALCIUM [Concomitant]
     Active Substance: CALCIUM
  8. VITAMIN D3 [Concomitant]
     Active Substance: CHOLECALCIFEROL
  9. MINERALS\VITAMINS [Concomitant]
     Active Substance: MINERALS\VITAMINS
  10. REFRESH TEARS [Concomitant]
     Active Substance: CARBOXYMETHYLCELLULOSE SODIUM

REACTIONS (3)
  - Eye infection bacterial [Unknown]
  - Photophobia [Not Recovered/Not Resolved]
  - Eye pain [Not Recovered/Not Resolved]
